FAERS Safety Report 22207632 (Version 2)
Quarter: 2023Q2

REPORT INFORMATION
  Report Type: Spontaneous
  Country: US (occurrence: US)
  Receive Date: 20230413
  Receipt Date: 20230612
  Transmission Date: 20230722
  Serious: No
  Sender: FDA-Public Use
  Company Number: US-BRISTOL-MYERS SQUIBB COMPANY-2023-049805

PATIENT
  Age: 66 Year
  Sex: Male
  Weight: 81.64 kg

DRUGS (1)
  1. POMALYST [Suspect]
     Active Substance: POMALIDOMIDE
     Indication: Plasma cell myeloma
     Dosage: FREQ: 3WKS ON,1WKOFF
     Route: 048

REACTIONS (2)
  - Cardiac disorder [Unknown]
  - Skin lesion [Recovering/Resolving]
